FAERS Safety Report 4542365-6 (Version None)
Quarter: 2004Q4

REPORT INFORMATION
  Report Type: 
  Country: None (occurrence: None)
  Receive Date: 20041229
  Receipt Date: 20041215
  Transmission Date: 20050328
  Serious: Yes (Hospitalization)
  Sender: FDA-Public Use
  Company Number: GXKR2004JP00564

PATIENT
  Age: 41 Year
  Sex: Male

DRUGS (5)
  1. RIMACTANE [Suspect]
     Indication: DISSEMINATED TUBERCULOSIS
     Dosage: ORAL
  2. ISONIAZID [Suspect]
     Indication: DISSEMINATED TUBERCULOSIS
  3. ESANBUTOL (ETHAMBUTOL) [Suspect]
     Indication: DISSEMINATED TUBERCULOSIS
  4. SULFAMETHOXAZOLE + TRIMETHOPRIM [Suspect]
     Indication: ACQUIRED IMMUNODEFICIENCY SYNDROME
  5. ALLOPURINOL [Suspect]

REACTIONS (2)
  - DERMATITIS EXFOLIATIVE [None]
  - TOXIC EPIDERMAL NECROLYSIS [None]
